FAERS Safety Report 8076888-2 (Version None)
Quarter: 2012Q1

REPORT INFORMATION
  Report Type: 
  Country: None (occurrence: None)
  Receive Date: 20120127
  Receipt Date: 20120117
  Transmission Date: 20120608
  Serious: Yes (Hospitalization, Other)
  Sender: FDA-Public Use
  Company Number: PHHY2012FR001100

PATIENT
  Age: 62 Year
  Sex: Male

DRUGS (8)
  1. NEORAL [Suspect]
     Dosage: 50 MG, BID (AT 1DF IN THE MORNING AND IN THE EVENING)
     Dates: start: 20110201
  2. PREDNISOLONE [Suspect]
     Dosage: 10 MG, DAILY
     Dates: start: 20110201
  3. FOLIC ACID [Concomitant]
     Dosage: 2 DF, DAILY
  4. VALGANCICLOVIR [Concomitant]
     Dosage: ONCE DAILY
  5. MYCOPHENOLATE MOFETIL (CELLCEPT) [Suspect]
     Dosage: 750 MG, BID
     Route: 048
     Dates: start: 20110201
  6. PANTOPRAZOLE [Concomitant]
     Dosage: 40 MG, DAILY
  7. DELURSAN [Concomitant]
     Dosage: UNK UKN, UNK
  8. FERROUS SULFATE TAB [Concomitant]
     Dosage: 2 DF, DAILY

REACTIONS (12)
  - PROGRESSIVE MULTIFOCAL LEUKOENCEPHALOPATHY [None]
  - HYPOTENSION [None]
  - JC VIRUS INFECTION [None]
  - MALAISE [None]
  - CEREBELLAR SYNDROME [None]
  - PRESYNCOPE [None]
  - HYPOACUSIS [None]
  - BRAIN OEDEMA [None]
  - NYSTAGMUS [None]
  - NEUROLOGICAL DECOMPENSATION [None]
  - HYPOTONIA [None]
  - DECREASED VIBRATORY SENSE [None]
